FAERS Safety Report 9726669 (Version 1)
Quarter: 2013Q4

REPORT INFORMATION
  Report Type: Spontaneous
  Country: TR (occurrence: None)
  Receive Date: 20131129
  Receipt Date: 20131129
  Transmission Date: 20140711
  Serious: Yes (Life-Threatening, Hospitalization)
  Sender: FDA-Public Use
  Company Number: 2013P1021395

PATIENT
  Age: 24 Year
  Sex: Male

DRUGS (2)
  1. METFORMIN [Suspect]
     Dosage: 16 GM; X1
  2. TELMISARTAN/HYDROCHLOROTHIAZIDE [Suspect]
     Dosage: 2.6/1.6 GM; X1

REACTIONS (3)
  - Suicide attempt [None]
  - Alanine aminotransferase increased [None]
  - Lactic acidosis [None]
